FAERS Safety Report 4558344-9 (Version None)
Quarter: 2005Q1

REPORT INFORMATION
  Report Type: 
  Country: None (occurrence: None)
  Receive Date: 20050103
  Receipt Date: 20041007
  Transmission Date: 20050727
  Serious: Yes (Other)
  Sender: FDA-Public Use
  Company Number: 2004UW21091

PATIENT
  Age: 70 Year
  Sex: Male
  Weight: 104.32 kg

DRUGS (2)
  1. CRESTOR [Suspect]
     Indication: BLOOD CHOLESTEROL INCREASED
     Dosage: 10 MG QD PO
     Route: 048
  2. ASPIRIN [Concomitant]

REACTIONS (2)
  - ARTHRALGIA [None]
  - DIFFICULTY IN WALKING [None]
